FAERS Safety Report 21141800 (Version 1)
Quarter: 2022Q3

REPORT INFORMATION
  Report Type: Spontaneous
  Country: US (occurrence: None)
  Receive Date: 20220728
  Receipt Date: 20220728
  Transmission Date: 20221027
  Serious: Yes (Hospitalization)
  Sender: FDA-Public Use
  Company Number: None

PATIENT
  Sex: Male
  Weight: 85.1 kg

DRUGS (3)
  1. CARBOPLATIN [Suspect]
     Active Substance: CARBOPLATIN
     Dates: end: 20201013
  2. DURVALUMAB [Suspect]
     Active Substance: DURVALUMAB
     Dates: end: 20210325
  3. TAXOL [Suspect]
     Active Substance: PACLITAXEL
     Dates: end: 20201013

REACTIONS (7)
  - COVID-19 [None]
  - Pneumonia [None]
  - Respiratory distress [None]
  - Leukocytosis [None]
  - Anaemia [None]
  - Pleural effusion [None]
  - Disease progression [None]

NARRATIVE: CASE EVENT DATE: 20220707
